FAERS Safety Report 9492322 (Version 1)
Quarter: 2013Q3

REPORT INFORMATION
  Report Type: Spontaneous
  Country: JP (occurrence: JP)
  Receive Date: 20130830
  Receipt Date: 20130830
  Transmission Date: 20140515
  Serious: Yes (Death, Hospitalization)
  Sender: FDA-Public Use
  Company Number: PHHY2013JP093312

PATIENT
  Age: 64 Year
  Sex: Female

DRUGS (4)
  1. METHOTREXATE [Suspect]
     Indication: RHEUMATOID ARTHRITIS
     Dosage: 5 MG, QW2
  2. PIPERACILLIN+TAZOBACTAM [Suspect]
     Indication: PSEUDOMONAS INFECTION
  3. SULFADIAZINE [Suspect]
     Indication: PSEUDOMONAS INFECTION
     Route: 061
  4. PREDNISOLONE [Concomitant]
     Indication: RHEUMATOID ARTHRITIS

REACTIONS (11)
  - Sepsis [Fatal]
  - Lymphoproliferative disorder [Unknown]
  - Papule [Unknown]
  - Scab [Unknown]
  - Pyrexia [Unknown]
  - Erythema [Unknown]
  - Skin lesion [Not Recovered/Not Resolved]
  - Pseudomonas infection [Unknown]
  - Skin necrosis [Unknown]
  - Epstein-Barr virus infection [Unknown]
  - Drug ineffective [Unknown]
